FAERS Safety Report 7364339-2 (Version None)
Quarter: 2011Q1

REPORT INFORMATION
  Report Type: 
  Country: None (occurrence: None)
  Receive Date: 20110321
  Receipt Date: 20110311
  Transmission Date: 20110831
  Serious: Yes (Hospitalization)
  Sender: FDA-Public Use
  Company Number: JP-ASTRAZENECA-2011SE14663

PATIENT
  Age: 54 Year
  Sex: Female

DRUGS (2)
  1. IOPAMIDOL-300 [Concomitant]
     Indication: ANGIOGRAM
     Dosage: USED 8 TIMES
     Route: 042
     Dates: start: 20070903, end: 20081119
  2. ARIMIDEX [Suspect]
     Indication: BREAST CANCER RECURRENT
     Route: 048
     Dates: start: 20070928, end: 20090415

REACTIONS (2)
  - HEPATIC FUNCTION ABNORMAL [None]
  - ANAPHYLACTIC SHOCK [None]
